FAERS Safety Report 23446910 (Version 13)
Quarter: 2025Q2

REPORT INFORMATION
  Report Type: Spontaneous
  Country: US (occurrence: US)
  Receive Date: 20240126
  Receipt Date: 20250609
  Transmission Date: 20250716
  Serious: Yes (Other)
  Sender: PFIZER
  Company Number: US-PFIZER INC-PV202400010612

PATIENT
  Age: 64 Year
  Sex: Male
  Weight: 111 kg

DRUGS (2)
  1. BOSULIF [Suspect]
     Active Substance: BOSUTINIB MONOHYDRATE
     Indication: Philadelphia positive chronic myeloid leukaemia
     Dosage: 400 MG, 1X/DAY
     Route: 048
  2. BOSULIF [Suspect]
     Active Substance: BOSUTINIB MONOHYDRATE
     Dosage: 300 MG, 1X/DAY (3 X 100 MG TABLET, ONCE DAILY WITH FOOD)
     Route: 048

REACTIONS (3)
  - Heart rate decreased [Unknown]
  - Diarrhoea [Unknown]
  - Headache [Unknown]
